FAERS Safety Report 8595787 (Version 3)
Quarter: 2014Q1

REPORT INFORMATION
  Report Type: Spontaneous
  Country: US (occurrence: US)
  Receive Date: 20120605
  Receipt Date: 20140107
  Transmission Date: 20141002
  Serious: Yes (Disabling, Other)
  Sender: FDA-Public Use
  Company Number: US-ASTRAZENECA-2012SE34986

PATIENT
  Age: 740 Month
  Sex: Male

DRUGS (13)
  1. PRILOSEC/OMEPRAZOLE [Suspect]
     Route: 048
  2. PRILOSEC/OMEPRAZOLE [Suspect]
     Dosage: DAILY
     Route: 048
     Dates: start: 20090119
  3. PRILOSEC OTC [Suspect]
     Route: 048
  4. PREVACID OTC [Suspect]
     Route: 065
  5. MILK OF MAGNESIA [Concomitant]
     Dosage: AS NEEDED
  6. PEPTO BISMOL [Concomitant]
     Dosage: AS NEEDED
  7. MYLANTA [Concomitant]
     Dosage: AS NEEDED
  8. METHYLPREDNISOLONE [Concomitant]
  9. CYCLOBENZAPRINE [Concomitant]
     Indication: MUSCLE RELAXANT THERAPY
  10. FLAX OIL [Concomitant]
     Dosage: DAILY
     Dates: start: 20090119
  11. VITAMINE E [Concomitant]
     Dosage: DAILY
     Dates: start: 20090119
  12. SUPER OMEGA 3 [Concomitant]
     Dosage: DAILY
     Dates: start: 20090119
  13. NEXIUM [Suspect]
     Route: 048

REACTIONS (13)
  - Cerebrovascular accident [Unknown]
  - Back disorder [Unknown]
  - Bone disorder [Unknown]
  - Spinal osteoarthritis [Unknown]
  - Osteoporosis [Unknown]
  - Bone density decreased [Unknown]
  - Multiple fractures [Unknown]
  - Calcium deficiency [Unknown]
  - Cataract [Unknown]
  - Chronic obstructive pulmonary disease [Unknown]
  - Scoliosis [Unknown]
  - Dyspnoea [Unknown]
  - Depression [Unknown]
